FAERS Safety Report 7460214-3 (Version None)
Quarter: 2011Q2

REPORT INFORMATION
  Report Type: 
  Country: None (occurrence: None)
  Receive Date: 20110505
  Receipt Date: 20110429
  Transmission Date: 20111010
  Serious: Yes (Death)
  Sender: FDA-Public Use
  Company Number: DE-ROCHE-774518

PATIENT
  Sex: Male
  Weight: 72 kg

DRUGS (3)
  1. FLUOROURACIL [Concomitant]
     Dates: start: 20101129, end: 20110207
  2. BEVACIZUMAB [Suspect]
     Dosage: DOSE: 7.5.
     Route: 065
     Dates: start: 20101129, end: 20110207
  3. FOLINIC ACID [Concomitant]
     Dates: start: 20101129, end: 20110207

REACTIONS (2)
  - NO THERAPEUTIC RESPONSE [None]
  - NEOPLASM MALIGNANT [None]
